FAERS Safety Report 7033169-3 (Version None)
Quarter: 2010Q4

REPORT INFORMATION
  Report Type: 
  Country: None (occurrence: None)
  Receive Date: 20101007
  Receipt Date: 20101005
  Transmission Date: 20110411
  Serious: Yes (Hospitalization)
  Sender: FDA-Public Use
  Company Number: A0884958A

PATIENT
  Age: 51 Year
  Sex: Female
  Weight: 101.4 kg

DRUGS (3)
  1. ALLI [Suspect]
     Dates: start: 20090201, end: 20090401
  2. AMLODIPINE BESYLATE AND BENAZEPRIL HCL [Concomitant]
     Indication: BLOOD PRESSURE
     Route: 048
  3. MOTRIN [Concomitant]
     Indication: BACK PAIN
     Route: 048

REACTIONS (6)
  - ABDOMINAL PAIN UPPER [None]
  - CHOLECYSTECTOMY [None]
  - CHOLELITHIASIS [None]
  - HEPATIC FUNCTION ABNORMAL [None]
  - HEPATIC STEATOSIS [None]
  - VOMITING [None]
